FAERS Safety Report 13141205 (Version 1)
Quarter: 2017Q1

REPORT INFORMATION
  Report Type: Spontaneous
  Country: US (occurrence: US)
  Receive Date: 20170123
  Receipt Date: 20170123
  Transmission Date: 20170428
  Serious: Yes (Other)
  Sender: FDA-Public Use
  Company Number: US-MYLANLABS-2016M1037939

PATIENT
  Sex: Male

DRUGS (3)
  1. PAROXETINE ZYDUS [Suspect]
     Active Substance: PAROXETINE
     Dosage: 10 MG, UNK
  2. BISOPROLOL FUMARATE TABLETS, USP [Suspect]
     Active Substance: BISOPROLOL FUMARATE
     Indication: TACHYCARDIA
     Dosage: 1.25 MG, UNK
  3. BISOPROLOL FUMARATE TABLETS, USP [Suspect]
     Active Substance: BISOPROLOL FUMARATE
     Dosage: 0.75 MG, UNK

REACTIONS (3)
  - Blood pressure decreased [Unknown]
  - Bradycardia [Unknown]
  - Dizziness [Unknown]
